FAERS Safety Report 9366409 (Version 1)
Quarter: 2013Q2

REPORT INFORMATION
  Report Type: Spontaneous
  Country: FR (occurrence: FR)
  Receive Date: 20130625
  Receipt Date: 20130625
  Transmission Date: 20140414
  Serious: Yes (Hospitalization)
  Sender: FDA-Public Use
  Company Number: FR-TEVA-414964ISR

PATIENT
  Age: 82 Year
  Sex: Female
  Weight: 45 kg

DRUGS (8)
  1. FUROSEMIDE TEVA 40 MG [Suspect]
     Dosage: 40 MILLIGRAM DAILY; 1.5 DF DAILY
     Dates: end: 20130610
  2. FUROSEMIDE TEVA 40 MG [Suspect]
     Dosage: 60 MILLIGRAM DAILY;
     Dates: start: 201305, end: 20130610
  3. PREVISCAN [Concomitant]
     Indication: INTERNATIONAL NORMALISED RATIO ABNORMAL
     Dosage: .125 DOSAGE FORMS DAILY; ON EVENING
  4. KARDEGIC [Concomitant]
     Dosage: ON MORNING
  5. PLAVIX [Concomitant]
     Dosage: 1 DOSAGE FORMS DAILY; ON MORNING
  6. INEXIUM [Concomitant]
  7. AMOXICILLIN [Concomitant]
     Indication: LUNG DISORDER
  8. SPIRIVA [Concomitant]

REACTIONS (5)
  - Respiratory disorder [Unknown]
  - Lung disorder [Unknown]
  - Pulmonary oedema [Unknown]
  - Oedema peripheral [Unknown]
  - Vertigo [Unknown]
